FAERS Safety Report 10883158 (Version 2)
Quarter: 2015Q1

REPORT INFORMATION
  Report Type: Spontaneous
  Country: DE (occurrence: DE)
  Receive Date: 20150303
  Receipt Date: 20150313
  Transmission Date: 20150721
  Serious: Yes (Other)
  Sender: FDA-Public Use
  Company Number: PHHY2015DE022667

PATIENT
  Sex: Female

DRUGS (3)
  1. BISOPROLOL [Concomitant]
     Active Substance: BISOPROLOL
     Indication: PRODUCT USED FOR UNKNOWN INDICATION
     Route: 065
  2. DAFIRO HCT [Suspect]
     Active Substance: AMLODIPINE\HYDROCHLOROTHIAZIDE\VALSARTAN
     Indication: PRODUCT USED FOR UNKNOWN INDICATION
     Dosage: 1 DF (320 MG VALS/ 10 MG AMLO/ 25 MG HYDR), UNK
     Route: 065
  3. OPIPRAMOL [Concomitant]
     Active Substance: OPIPRAMOL
     Indication: PRODUCT USED FOR UNKNOWN INDICATION
     Dosage: 50 MG, UNK
     Route: 065

REACTIONS (10)
  - Nausea [Unknown]
  - Alopecia [Unknown]
  - Paraesthesia [Unknown]
  - Back pain [Unknown]
  - Tremor [Unknown]
  - Blood pressure increased [Unknown]
  - Drug ineffective [Unknown]
  - Nerve injury [Unknown]
  - Optic nerve injury [Unknown]
  - Dizziness [Unknown]
